FAERS Safety Report 15090542 (Version 1)
Quarter: 2018Q2

REPORT INFORMATION
  Report Type: Spontaneous
  Country: CA (occurrence: CA)
  Receive Date: 20180629
  Receipt Date: 20180629
  Transmission Date: 20180711
  Serious: Yes (Other)
  Sender: FDA-Public Use
  Company Number: CA-PFIZER INC-2017400766

PATIENT
  Age: 41 Year
  Sex: Male

DRUGS (7)
  1. DOSTINEX [Suspect]
     Active Substance: CABERGOLINE
     Indication: ACROMEGALY
     Dosage: 0.25 MG, EVERY WEEK FOR 2 DOSES
     Route: 048
     Dates: start: 20170816
  2. COVERSYL PLUS /01421201/ [Concomitant]
     Active Substance: INDAPAMIDE\PERINDOPRIL ERBUMINE
     Dosage: 4MG/1.25MG , DAILY
     Route: 048
  3. ANDROGEL [Concomitant]
     Active Substance: TESTOSTERONE
     Dosage: 5 G, DAILY
  4. LOPROX [Concomitant]
     Active Substance: CICLOPIROX\CICLOPIROX OLAMINE
     Dosage: APPLICATION TO GROIN EVERY DAY, AS NEEDED
     Route: 061
  5. DOSTINEX [Suspect]
     Active Substance: CABERGOLINE
     Dosage: 0.5 MG, WEEKLY
     Route: 048
     Dates: start: 20170816
  6. VALACYCLOVIR [Concomitant]
     Active Substance: VALACYCLOVIR HYDROCHLORIDE
     Indication: SKIN LESION
     Dosage: 250 MG, 2X/DAY , AS NEEDED
     Route: 048
  7. MOMETASONE /00908302/ [Concomitant]
     Dosage: 50 UG, 2 SPRAYS IN EACH NOSTRIL EVERY DAY, AS NEEDED
     Route: 045

REACTIONS (17)
  - Neoplasm [Unknown]
  - Insulin-like growth factor increased [Unknown]
  - Red cell distribution width increased [Unknown]
  - Haematocrit decreased [Unknown]
  - Glycosylated haemoglobin increased [Unknown]
  - Vitamin D decreased [Unknown]
  - Blood triglycerides increased [Unknown]
  - Mean cell volume decreased [Unknown]
  - Blood iron decreased [Unknown]
  - Product use in unapproved indication [Not Recovered/Not Resolved]
  - Mean cell haemoglobin decreased [Unknown]
  - Transferrin saturation decreased [Unknown]
  - Haemoglobin decreased [Unknown]
  - Eosinophil count increased [Unknown]
  - Fatigue [Unknown]
  - Blood phosphorus increased [Unknown]
  - Monocyte count increased [Unknown]

NARRATIVE: CASE EVENT DATE: 20170816
